FAERS Safety Report 11870953 (Version 2)
Quarter: 2016Q1

REPORT INFORMATION
  Report Type: Spontaneous
  Country: US (occurrence: US)
  Receive Date: 20151228
  Receipt Date: 20160303
  Transmission Date: 20160526
  Serious: Yes (Other)
  Sender: FDA-Public Use
  Company Number: US-BAYER-2015-491265

PATIENT
  Age: 24 Year
  Sex: Female

DRUGS (1)
  1. MIRENA [Suspect]
     Active Substance: LEVONORGESTREL
     Indication: CONTRACEPTION
     Dosage: 20 MCG/24HR, CONT
     Route: 015
     Dates: start: 20070517, end: 20150404

REACTIONS (6)
  - Device use error [None]
  - Pain [None]
  - Uterine perforation [None]
  - Ectopic pregnancy with contraceptive device [None]
  - Drug ineffective [None]
  - Complication of device removal [None]

NARRATIVE: CASE EVENT DATE: 2011
